FAERS Safety Report 4384617-9 (Version None)
Quarter: 2004Q2

REPORT INFORMATION
  Report Type: 
  Country: None (occurrence: None)
  Receive Date: 20040625
  Receipt Date: 20030711
  Transmission Date: 20050107
  Serious: No
  Sender: FDA-Public Use
  Company Number: US-BRISTOL-MYERS SQUIBB COMPANY-12323481

PATIENT
  Sex: Female

DRUGS (2)
  1. SINEMET CR [Suspect]
     Indication: NERVOUS SYSTEM DISORDER
     Dosage: ON ^SINEMET CR ^5200^, 1 TAB IN MORNING + AFTERNOON; 1/2 TAB IN EVENING.
     Route: 048
  2. REQUIP [Concomitant]

REACTIONS (3)
  - ANXIETY [None]
  - HYPERTENSION [None]
  - THERAPEUTIC RESPONSE DECREASED [None]
